FAERS Safety Report 7539817-3 (Version None)
Quarter: 2011Q2

REPORT INFORMATION
  Report Type: 
  Country: None (occurrence: None)
  Receive Date: 20110610
  Receipt Date: 20110607
  Transmission Date: 20111010
  Serious: Yes (Death, Hospitalization, Other)
  Sender: FDA-Public Use
  Company Number: PHEH2008US06284

PATIENT
  Sex: Female

DRUGS (6)
  1. ATENOLOL [Concomitant]
  2. LISINOPRIL [Concomitant]
  3. OXYCONTIN [Concomitant]
  4. ZOMETA [Suspect]
  5. HYDROCHLOROTHIAZIDE [Concomitant]
  6. POTASSIUM CHLORIDE [Concomitant]

REACTIONS (42)
  - NEOPLASM MALIGNANT [None]
  - INFLAMMATION [None]
  - ANXIETY [None]
  - HYPOAESTHESIA [None]
  - HAEMORRHAGE [None]
  - ALVEOLAR OSTEITIS [None]
  - VOMITING [None]
  - CHOLECYSTITIS [None]
  - BILE DUCT OBSTRUCTION [None]
  - NEOPLASM PROGRESSION [None]
  - OSTEOMYELITIS [None]
  - INFECTION [None]
  - IMPAIRED HEALING [None]
  - PANCREATITIS [None]
  - INJURY [None]
  - PSEUDOEPITHELIOMATOUS HYPERPLASIA [None]
  - ASTHENIA [None]
  - TREMOR [None]
  - HEPATIC NEOPLASM MALIGNANT [None]
  - CONSTIPATION [None]
  - SCAR [None]
  - PAIN IN JAW [None]
  - CHOLELITHIASIS [None]
  - RENAL CYST [None]
  - UMBILICAL HERNIA [None]
  - ATELECTASIS [None]
  - SMALL INTESTINAL OBSTRUCTION [None]
  - OSTEONECROSIS OF JAW [None]
  - EXPOSED BONE IN JAW [None]
  - EXCESSIVE GRANULATION TISSUE [None]
  - DIARRHOEA [None]
  - HEPATIC CIRRHOSIS [None]
  - BONE LESION [None]
  - METASTASES TO BONE [None]
  - SWELLING [None]
  - GIANT CELL EPULIS [None]
  - OSTEOARTHRITIS [None]
  - NEPHROLITHIASIS [None]
  - ARTHROPATHY [None]
  - ABDOMINAL PAIN [None]
  - ASCITES [None]
  - LUNG NEOPLASM [None]
